FAERS Safety Report 16206172 (Version 1)
Quarter: 2019Q2

REPORT INFORMATION
  Report Type: Spontaneous
  Country: GB (occurrence: GB)
  Receive Date: 20190417
  Receipt Date: 20190417
  Transmission Date: 20190711
  Serious: Yes (Hospitalization)
  Sender: FDA-Public Use
  Company Number: GB-TEVA-2019-GB-1037948

PATIENT
  Age: 89 Year
  Sex: Female
  Weight: 55 kg

DRUGS (17)
  1. DOXAZOSIN [Suspect]
     Active Substance: DOXAZOSIN\DOXAZOSIN MESYLATE
     Indication: ESSENTIAL HYPERTENSION
     Dosage: 6 MILLIGRAM DAILY; IN THE MORNING.
     Route: 048
     Dates: start: 20180601, end: 20190317
  2. AMITRIPTYLINE [Suspect]
     Active Substance: AMITRIPTYLINE
     Indication: INTERVERTEBRAL DISC PROTRUSION
     Dosage: 60 MILLIGRAM DAILY; AT NIGHT.
     Route: 048
     Dates: start: 20181001, end: 20190317
  3. ALENDRONIC ACID [Concomitant]
     Active Substance: ALENDRONIC ACID
  4. PARACETAMOL [Concomitant]
     Active Substance: ACETAMINOPHEN
  5. SALBUTAMOL [Concomitant]
     Active Substance: ALBUTEROL
  6. APIXABAN [Concomitant]
     Active Substance: APIXABAN
  7. BRALTUS [Concomitant]
     Active Substance: TIOTROPIUM BROMIDE
  8. OMEPRAZOLE. [Concomitant]
     Active Substance: OMEPRAZOLE
  9. OXYCODONE [Concomitant]
     Active Substance: OXYCODONE
  10. ACCRETE D3 [Concomitant]
     Active Substance: CALCIUM CARBONATE\CHOLECALCIFEROL
  11. LAXIDO [Concomitant]
     Active Substance: POLYETHYLENE GLYCOL 3350\POTASSIUM CHLORIDE\SODIUM BICARBONATE\SODIUM CHLORIDE
  12. SIRDUPLA [Concomitant]
     Active Substance: FLUTICASONE PROPIONATE\SALMETEROL XINAFOATE
  13. LOSARTAN. [Concomitant]
     Active Substance: LOSARTAN
  14. QUININE SULFATE. [Concomitant]
     Active Substance: QUININE SULFATE
  15. CEFALEXIN [Concomitant]
     Active Substance: CEPHALEXIN
  16. FENTANYL. [Concomitant]
     Active Substance: FENTANYL
  17. SIMVASTATIN. [Concomitant]
     Active Substance: SIMVASTATIN

REACTIONS (2)
  - Confusional state [Recovered/Resolved]
  - Fall [Recovered/Resolved]

NARRATIVE: CASE EVENT DATE: 20190317
